FAERS Safety Report 12777383 (Version 2)
Quarter: 2018Q1

REPORT INFORMATION
  Report Type: Spontaneous
  Country: US (occurrence: US)
  Receive Date: 20160924
  Receipt Date: 20180305
  Transmission Date: 20180508
  Serious: No
  Sender: FDA-Public Use
  Company Number: US-ASTRAZENECA-2016SE98059

PATIENT
  Age: 857 Month
  Sex: Male
  Weight: 87.5 kg

DRUGS (13)
  1. METOPROLOL. [Suspect]
     Active Substance: METOPROLOL
     Indication: BLOOD CHOLESTEROL ABNORMAL
     Route: 048
     Dates: start: 200002
  2. SENIOR MULTIVITAMIN [Concomitant]
     Indication: VITAMIN SUPPLEMENTATION
     Dosage: DAILY
     Route: 048
     Dates: start: 2000
  3. VITAMIN D [Concomitant]
     Active Substance: CHOLECALCIFEROL
     Indication: VITAMIN SUPPLEMENTATION
     Route: 048
     Dates: start: 2000
  4. FISH OIL [Concomitant]
     Active Substance: FISH OIL
     Indication: SUPPLEMENTATION THERAPY
     Route: 048
     Dates: start: 2000
  5. PLAVIX [Concomitant]
     Active Substance: CLOPIDOGREL BISULFATE
     Indication: ANTICOAGULANT THERAPY
     Dosage: 75 MG, DAILY, GENERIC
     Route: 048
     Dates: start: 200002
  6. BABY ASPIRIN [Concomitant]
     Active Substance: ASPIRIN
     Indication: ANTICOAGULANT THERAPY
     Route: 048
     Dates: start: 200002
  7. TUDORZA PRESSAIR [Suspect]
     Active Substance: ACLIDINIUM BROMIDE
     Indication: ASTHMA
     Dosage: 400 UG, 1 PUFF TWICE A DAY
     Route: 055
     Dates: start: 2014
  8. ALBUTEROL RESCUE INHALER [Concomitant]
     Indication: ASTHMA
     Route: 055
     Dates: start: 200606
  9. ALBUTEROL RESCUE INHALER [Concomitant]
     Indication: EMPHYSEMA
     Route: 055
     Dates: start: 200606
  10. ALBUTEROL RESCUE INHALER [Concomitant]
     Indication: CHRONIC OBSTRUCTIVE PULMONARY DISEASE
     Route: 055
     Dates: start: 200606
  11. TUDORZA PRESSAIR [Suspect]
     Active Substance: ACLIDINIUM BROMIDE
     Indication: CHRONIC OBSTRUCTIVE PULMONARY DISEASE
     Dosage: 400 UG, 1 PUFF TWICE A DAY
     Route: 055
     Dates: start: 2014
  12. TUDORZA PRESSAIR [Suspect]
     Active Substance: ACLIDINIUM BROMIDE
     Indication: EMPHYSEMA
     Dosage: 400 UG, 1 PUFF TWICE A DAY
     Route: 055
     Dates: start: 2014
  13. HYDROCHLOROTHIAZIDE. [Concomitant]
     Active Substance: HYDROCHLOROTHIAZIDE
     Indication: DIURETIC THERAPY
     Route: 048
     Dates: start: 200002

REACTIONS (4)
  - Intentional product misuse [Unknown]
  - Dyspnoea [Unknown]
  - Drug dose omission [Unknown]
  - Device malfunction [Unknown]

NARRATIVE: CASE EVENT DATE: 201609
